FAERS Safety Report 7711516-4 (Version None)
Quarter: 2011Q3

REPORT INFORMATION
  Report Type: 
  Country: None (occurrence: None)
  Receive Date: 20110823
  Receipt Date: 20110812
  Transmission Date: 20111222
  Serious: Yes (Death, Other)
  Sender: FDA-Public Use
  Company Number: WAES 1008FRA00018

PATIENT
  Age: 54 Year
  Sex: Male

DRUGS (15)
  1. ISONIAZID [Suspect]
     Indication: TUBERCULOSIS
     Dosage: 400 MG/DAILY
     Route: 048
     Dates: start: 20100522, end: 20100820
  2. PYRIDOXINE HCL [Concomitant]
  3. IVERMECTIN [Concomitant]
  4. PYRAZINAMIDE [Concomitant]
  5. TENOFOVIR DISOPROXIL FUMARATE [Suspect]
     Indication: HIV INFECTION
     Dosage: 300 MG/DAILY
     Route: 048
     Dates: start: 20100530
  6. ACYCLOVIR [Concomitant]
  7. LEUCOVORIN CALCIUM [Concomitant]
  8. ISENTRESS [Suspect]
     Indication: HIV INFECTION
     Dosage: 800 MG/DAILY
     Route: 048
     Dates: start: 20100530, end: 20100831
  9. SULFAMETHOXAZOLE AND TRIMETHOPRIM [Concomitant]
  10. RIFAMPIN [Suspect]
     Indication: TUBERCULOSIS
     Dosage: 600 MG/DAILY
     Route: 048
     Dates: start: 20100522, end: 20100810
  11. DAPSONE [Suspect]
     Indication: PROPHYLAXIS
     Dosage: 100 MG/DAILY
     Dates: start: 20110115
  12. OMEPRAZOLE [Concomitant]
  13. LAMIVUDINE [Suspect]
     Indication: HIV INFECTION
     Dosage: 300 MG/DAILY
     Route: 048
     Dates: start: 20100620
  14. AZITHROMYCIN [Concomitant]
  15. CIPROFLOXACIN [Concomitant]

REACTIONS (6)
  - DRUG ERUPTION [None]
  - NEUTROPENIA [None]
  - ANAEMIA [None]
  - LEUKOPENIA [None]
  - SEPTIC SHOCK [None]
  - MYOCARDIAL INFARCTION [None]
